FAERS Safety Report 5050618-0 (Version None)
Quarter: 2006Q3

REPORT INFORMATION
  Report Type: 
  Country: None (occurrence: None)
  Receive Date: 20060710
  Receipt Date: 20060622
  Transmission Date: 20061208
  Serious: Yes (Hospitalization)
  Sender: FDA-Public Use
  Company Number: 2006RR-02778

PATIENT
  Sex: Female

DRUGS (3)
  1. CODEINE PHOSPHATE [Suspect]
  2. PARACETAMOL FAMILY (PARACETAMOL) TABLET [Suspect]
  3. TRAMADOL HCL [Suspect]
     Dosage: 50 MG QID ORAL
     Route: 048

REACTIONS (2)
  - ALANINE AMINOTRANSFERASE INCREASED [None]
  - OVERDOSE [None]
